FAERS Safety Report 24113467 (Version 1)
Quarter: 2024Q3

REPORT INFORMATION
  Report Type: Spontaneous
  Country: JP (occurrence: JP)
  Receive Date: 20240720
  Receipt Date: 20240720
  Transmission Date: 20241016
  Serious: Yes (Other)
  Sender: NOVARTIS
  Company Number: JP-002147023-NVSJ2024JP008482

PATIENT
  Sex: Male

DRUGS (2)
  1. TRAVATAN Z [Suspect]
     Active Substance: TRAVOPROST
     Indication: Glaucoma
     Dosage: UNK
     Route: 047
  2. LUMIGAN [Concomitant]
     Active Substance: BIMATOPROST
     Indication: Product used for unknown indication
     Dosage: UNK
     Route: 047

REACTIONS (4)
  - Blindness [Unknown]
  - Intraocular pressure increased [Unknown]
  - Ocular discomfort [Unknown]
  - Eyelids pruritus [Unknown]
